FAERS Safety Report 4701865-6 (Version None)
Quarter: 2005Q2

REPORT INFORMATION
  Report Type: 
  Country: None (occurrence: None)
  Receive Date: 20050627
  Receipt Date: 20050613
  Transmission Date: 20051028
  Serious: Yes (Other)
  Sender: FDA-Public Use
  Company Number: 2005089693

PATIENT
  Sex: Male
  Weight: 124.7392 kg

DRUGS (5)
  1. VIAGRA [Suspect]
     Indication: ILL-DEFINED DISORDER
     Dosage: (25 MG),ORAL
     Route: 048
     Dates: start: 20040101
  2. WELLBUTRIN XL [Concomitant]
  3. SEROQUEL [Concomitant]
  4. LITHIUM CARBONATE [Concomitant]
  5. LEVTHROID (LEVOTHYROXINE SODIUM) [Concomitant]

REACTIONS (5)
  - ARTHRALGIA [None]
  - BACK PAIN [None]
  - BONE PAIN [None]
  - DRUG INEFFECTIVE [None]
  - SHOULDER PAIN [None]
